FAERS Safety Report 20596594 (Version 1)
Quarter: 2022Q1

REPORT INFORMATION
  Report Type: Spontaneous
  Country: IT (occurrence: IT)
  Receive Date: 20220315
  Receipt Date: 20220315
  Transmission Date: 20220423
  Serious: Yes (Other)
  Sender: FDA-Public Use
  Company Number: IT-PFIZER INC-202200309959

PATIENT
  Age: 72 Year
  Sex: Male

DRUGS (4)
  1. PEMBROLIZUMAB [Suspect]
     Active Substance: PEMBROLIZUMAB
     Indication: Renal cell carcinoma
     Dosage: 200 MG
     Route: 042
     Dates: start: 202102
  2. AXITINIB [Suspect]
     Active Substance: AXITINIB
     Indication: Renal cell carcinoma
     Dosage: 10 MG, 1X/DAY
     Dates: start: 20210824
  3. AXITINIB [Suspect]
     Active Substance: AXITINIB
     Dosage: 10 MG, 1X/DAY
     Dates: start: 202102, end: 20210803
  4. AXITINIB [Suspect]
     Active Substance: AXITINIB
     Dosage: 5 MG, 1X/DAY
     Dates: start: 20210807

REACTIONS (2)
  - Hepatotoxicity [Unknown]
  - Hypertension [Unknown]
